FAERS Safety Report 6572909-4 (Version None)
Quarter: 2010Q1

REPORT INFORMATION
  Report Type: 
  Country: None (occurrence: None)
  Receive Date: 20100207
  Receipt Date: 20100203
  Transmission Date: 20100710
  Serious: Yes (Other)
  Sender: FDA-Public Use
  Company Number: AU-BRISTOL-MYERS SQUIBB COMPANY-14960868

PATIENT
  Sex: Female

DRUGS (2)
  1. AVAPRO [Suspect]
     Indication: HYPERTENSION
     Dosage: 1 D.F = 300/25 (AVAPRO HCT).
     Dates: start: 20091001
  2. AVAPRO [Suspect]

REACTIONS (3)
  - BLINDNESS UNILATERAL [None]
  - FATIGUE [None]
  - PRESYNCOPE [None]
